FAERS Safety Report 6272518-0 (Version None)
Quarter: 2009Q3

REPORT INFORMATION
  Report Type: 
  Country: None (occurrence: None)
  Receive Date: 20090717
  Receipt Date: 20090706
  Transmission Date: 20100115
  Serious: Yes (Other)
  Sender: FDA-Public Use
  Company Number: JP-PFIZER INC-2009240616

PATIENT
  Age: 36 Year

DRUGS (7)
  1. LIPITOR [Suspect]
     Indication: DYSLIPIDAEMIA
     Dosage: 10 MG, UNK/D
     Route: 048
  2. MICARDIS [Suspect]
     Dosage: 80 MG, UNK/D
     Route: 048
  3. MITIGLINIDE [Concomitant]
     Dosage: UNK
  4. GLYCORAN [Concomitant]
     Dosage: UNK
  5. ACTOS [Concomitant]
     Dosage: UNK
  6. ALLOPURINOL [Concomitant]
     Dosage: UNK
  7. BASEN [Concomitant]
     Dosage: UNK

REACTIONS (1)
  - BLOOD CREATININE INCREASED [None]
